FAERS Safety Report 9389867 (Version 1)
Quarter: 2013Q3

REPORT INFORMATION
  Report Type: Spontaneous
  Country: US (occurrence: US)
  Receive Date: 20130708
  Receipt Date: 20130708
  Transmission Date: 20140515
  Serious: Yes (Hospitalization)
  Sender: FDA-Public Use
  Company Number: US-AMGEN-USASP2013044037

PATIENT
  Age: 50 Year
  Sex: Male

DRUGS (1)
  1. ENBREL [Suspect]
     Indication: RHEUMATOID ARTHRITIS
     Dosage: 50 MG, UNK
     Route: 065
     Dates: start: 2005

REACTIONS (10)
  - Pneumonia [Not Recovered/Not Resolved]
  - Staphylococcal infection [Recovered/Resolved]
  - Spinal pain [Unknown]
  - Back pain [Unknown]
  - Fall [Recovered/Resolved]
  - Wrist fracture [Recovered/Resolved]
  - Swelling [Recovered/Resolved]
  - Oedema peripheral [Not Recovered/Not Resolved]
  - Swelling face [Recovered/Resolved]
  - Pain in extremity [Not Recovered/Not Resolved]
